FAERS Safety Report 12986461 (Version 1)
Quarter: 2016Q4

REPORT INFORMATION
  Report Type: Spontaneous
  Country: US (occurrence: US)
  Receive Date: 20161130
  Receipt Date: 20161130
  Transmission Date: 20170207
  Serious: Yes (Hospitalization)
  Sender: FDA-Public Use
  Company Number: US-PURDUE-DEU-2016-0018415

PATIENT
  Age: 23 Year
  Sex: Female

DRUGS (4)
  1. NON-PMN BUPRENORPHINE [Suspect]
     Active Substance: BUPRENORPHINE
     Indication: DRUG WITHDRAWAL MAINTENANCE THERAPY
  2. NON-PMN BUPRENORPHINE [Suspect]
     Active Substance: BUPRENORPHINE
     Indication: DRUG DEPENDENCE
     Dosage: UNK UNK, SEE TEXT
     Route: 048
  3. NALOXONE [Concomitant]
     Active Substance: NALOXONE
     Indication: DRUG DEPENDENCE
  4. NALOXONE [Concomitant]
     Active Substance: NALOXONE
     Indication: DRUG WITHDRAWAL MAINTENANCE THERAPY

REACTIONS (1)
  - Hepatitis acute [Recovering/Resolving]
